FAERS Safety Report 17143692 (Version 1)
Quarter: 2019Q4

REPORT INFORMATION
  Report Type: Spontaneous
  Country: US (occurrence: US)
  Receive Date: 20191211
  Receipt Date: 20191211
  Transmission Date: 20200122
  Serious: Yes (Disabling)
  Sender: FDA-Public Use
  Company Number: None

PATIENT
  Age: 33 Year
  Sex: Male
  Weight: 85.5 kg

DRUGS (1)
  1. XYREM [Suspect]
     Active Substance: SODIUM OXYBATE
     Indication: NARCOLEPSY
     Dosage: ?          OTHER FREQUENCY:TWICE NIGHTLY;?
     Route: 048

REACTIONS (2)
  - Hypertension [None]
  - Product complaint [None]

NARRATIVE: CASE EVENT DATE: 20190901
